FAERS Safety Report 7517557-4 (Version None)
Quarter: 2011Q2

REPORT INFORMATION
  Report Type: 
  Country: None (occurrence: None)
  Receive Date: 20110601
  Receipt Date: 20110519
  Transmission Date: 20111010
  Serious: Yes (Other)
  Sender: FDA-Public Use
  Company Number: CY-ELI_LILLY_AND_COMPANY-CY201105005967

PATIENT
  Sex: Male

DRUGS (6)
  1. FORTEO [Suspect]
     Indication: OSTEOPOROSIS
     Dosage: UNK UNK, UNKNOWN
     Route: 065
     Dates: start: 20101119, end: 20110319
  2. CALCIUM + VITAMIN D [Concomitant]
     Dosage: 1000 G, QD
     Route: 065
  3. VOLTAREN [Concomitant]
     Dosage: UNK UNK, BID
     Route: 065
  4. RAMIPRIL [Concomitant]
     Indication: HYPERTENSION
     Dosage: 5 MG, QD
     Route: 065
  5. VALIUM [Concomitant]
     Indication: PAIN
     Dosage: 5 MG, QD
     Route: 065
  6. NORVASC [Concomitant]
     Indication: HYPERTENSION
     Dosage: 5 MG, QD
     Route: 065

REACTIONS (4)
  - BONE SWELLING [None]
  - RED BLOOD CELL SEDIMENTATION RATE INCREASED [None]
  - LEUKOCYTOSIS [None]
  - NORMOCHROMIC NORMOCYTIC ANAEMIA [None]
